FAERS Safety Report 13371845 (Version 1)
Quarter: 2017Q1

REPORT INFORMATION
  Report Type: Spontaneous
  Country: US (occurrence: US)
  Receive Date: 20170325
  Receipt Date: 20170325
  Transmission Date: 20170429
  Serious: No
  Sender: FDA-Public Use
  Company Number: US-MEDA-2017030050

PATIENT
  Age: 60 Year
  Sex: Male
  Weight: 156 kg

DRUGS (2)
  1. ISO-BID [Concomitant]
     Active Substance: ISOSORBIDE DINITRATE
  2. MUSE [Suspect]
     Active Substance: ALPROSTADIL
     Indication: ERECTILE DYSFUNCTION
     Route: 066
     Dates: start: 2016

REACTIONS (2)
  - Penile pain [Recovered/Resolved]
  - Drug ineffective [Unknown]

NARRATIVE: CASE EVENT DATE: 2016
